FAERS Safety Report 5562385-2 (Version None)
Quarter: 2007Q4

REPORT INFORMATION
  Report Type: 
  Country: None (occurrence: None)
  Receive Date: 20071215
  Receipt Date: 20070817
  Transmission Date: 20080405
  Serious: No
  Sender: FDA-Public Use
  Company Number: US-AMGEN-KDL239444

PATIENT
  Sex: Female

DRUGS (12)
  1. PROCRIT [Suspect]
     Indication: RENAL FAILURE CHRONIC
     Dates: start: 20030101
  2. ARANESP [Suspect]
  3. LASIX [Concomitant]
  4. ACCUPRIL [Concomitant]
  5. LIPITOR [Concomitant]
  6. MICARDIS [Concomitant]
  7. XANAX [Concomitant]
  8. NU-IRON [Concomitant]
  9. LANTUS [Concomitant]
  10. HUMALOG [Concomitant]
  11. TUMS [Concomitant]
  12. ROCALTROL [Concomitant]

REACTIONS (3)
  - HEADACHE [None]
  - MIGRAINE [None]
  - PYREXIA [None]
